FAERS Safety Report 8447421-8 (Version None)
Quarter: 2012Q2

REPORT INFORMATION
  Report Type: 
  Country: None (occurrence: None)
  Receive Date: 20120619
  Receipt Date: 20120608
  Transmission Date: 20120825
  Serious: Yes (Hospitalization)
  Sender: FDA-Public Use
  Company Number: US-JNJFOC-20120604993

PATIENT
  Sex: Female
  Weight: 49.9 kg

DRUGS (3)
  1. PREDNISONE [Suspect]
     Indication: COLITIS ULCERATIVE
     Route: 048
     Dates: start: 20120601
  2. ACYCLOVIR [Concomitant]
     Indication: COLITIS ULCERATIVE
     Route: 048
  3. REMICADE [Suspect]
     Indication: COLITIS ULCERATIVE
     Route: 042
     Dates: start: 20110420

REACTIONS (4)
  - CLOSTRIDIAL INFECTION [None]
  - DYSPLASIA [None]
  - COLITIS [None]
  - DISTURBANCE IN ATTENTION [None]
